FAERS Safety Report 9649587 (Version 2)
Quarter: 2013Q4

REPORT INFORMATION
  Report Type: Spontaneous
  Country: DE (occurrence: None)
  Receive Date: 20131025
  Receipt Date: 20131112
  Transmission Date: 20140711
  Serious: Yes (Other)
  Sender: FDA-Public Use
  Company Number: 1310-1312

PATIENT
  Age: 84 Year
  Sex: Male

DRUGS (1)
  1. EYLEA [Suspect]
     Indication: AGE-RELATED MACULAR DEGENERATION
     Dosage: 1 IN 4 WK
     Dates: start: 201212

REACTIONS (4)
  - Eye pain [None]
  - Eye injury [None]
  - Diplopia [None]
  - Visual impairment [None]
